FAERS Safety Report 25052861 (Version 1)
Quarter: 2025Q1

REPORT INFORMATION
  Report Type: Spontaneous
  Country: US (occurrence: US)
  Receive Date: 20250307
  Receipt Date: 20250307
  Transmission Date: 20250408
  Serious: No
  Sender: SANOFI AVENTIS
  Company Number: US-SA-2025SA062435

PATIENT
  Sex: Male

DRUGS (17)
  1. DUPIXENT [Suspect]
     Active Substance: DUPILUMAB
     Indication: Lipoprotein metabolism disorder
     Dosage: 300 MG, QOW
     Route: 058
  2. ALBUTEROL SULFATE [Concomitant]
     Active Substance: ALBUTEROL SULFATE
  3. ALLOPURINOL [Concomitant]
     Active Substance: ALLOPURINOL
  4. ASCORBIC ACID [Concomitant]
     Active Substance: ASCORBIC ACID
  5. ATENOLOL [Concomitant]
     Active Substance: ATENOLOL
  6. CYANOCOBALAMIN [Concomitant]
     Active Substance: CYANOCOBALAMIN
  7. FERROUS GLUCONATE [Concomitant]
     Active Substance: FERROUS GLUCONATE
  8. INSULIN GLARGINE [Concomitant]
     Active Substance: INSULIN GLARGINE
  9. METFORMIN [Concomitant]
     Active Substance: METFORMIN HYDROCHLORIDE
  10. MOMETASONE FUROATE [Concomitant]
     Active Substance: MOMETASONE FUROATE
  11. OMEGA 3 [Concomitant]
     Active Substance: CAPSAICIN
  12. OMEPRAZOLE [Concomitant]
     Active Substance: OMEPRAZOLE
  13. ROSUVASTATIN [Concomitant]
     Active Substance: ROSUVASTATIN
  14. SITAGLIPTIN [Concomitant]
     Active Substance: SITAGLIPTIN
  15. TIOTROPIUM BROMIDE [Concomitant]
     Active Substance: TIOTROPIUM BROMIDE
  16. TYLENOL [Concomitant]
     Active Substance: ACETAMINOPHEN
  17. VITAMIN B12 [Concomitant]
     Active Substance: CYANOCOBALAMIN

REACTIONS (3)
  - Oropharyngeal pain [Not Recovered/Not Resolved]
  - Nocturia [Not Recovered/Not Resolved]
  - Product use in unapproved indication [Unknown]
